FAERS Safety Report 18249981 (Version 1)
Quarter: 2020Q3

REPORT INFORMATION
  Report Type: Spontaneous
  Country: JP (occurrence: JP)
  Receive Date: 20200909
  Receipt Date: 20200909
  Transmission Date: 20201103
  Serious: Yes (Death, Other)
  Sender: FDA-Public Use
  Company Number: JP-TAIHO ONCOLOGY  INC-JPTT200274

PATIENT
  Age: 9 Decade
  Sex: Male

DRUGS (2)
  1. LONSURF [Suspect]
     Active Substance: TIPIRACIL HYDROCHLORIDE\TRIFLURIDINE
     Indication: COLORECTAL CANCER
     Dosage: DETAILS NOT REPORTED
     Route: 048
     Dates: start: 202007
  2. AVASTIN [Concomitant]
     Active Substance: BEVACIZUMAB
     Indication: COLORECTAL CANCER
     Dosage: DETAILS NOT REPORTED
     Route: 041
     Dates: start: 202007

REACTIONS (3)
  - White blood cell count decreased [Fatal]
  - Platelet count decreased [Unknown]
  - Neutrophil count decreased [Fatal]

NARRATIVE: CASE EVENT DATE: 20200811
